FAERS Safety Report 11389263 (Version 2)
Quarter: 2015Q3

REPORT INFORMATION
  Report Type: Spontaneous
  Country: US (occurrence: US)
  Receive Date: 20150817
  Receipt Date: 20150915
  Transmission Date: 20151125
  Serious: Yes (Hospitalization)
  Sender: FDA-Public Use
  Company Number: US-ROXANE LABORATORIES, INC.-2015-RO-01351RO

PATIENT
  Sex: Female
  Weight: 83 kg

DRUGS (9)
  1. DULOXETINE HCL [Suspect]
     Active Substance: DULOXETINE HYDROCHLORIDE
     Indication: PAIN
     Dosage: 30 MG
     Route: 065
  2. METAMUCIL [Concomitant]
     Active Substance: PLANTAGO SEED
     Indication: GASTROINTESTINAL DISORDER
     Route: 065
  3. MINERAL OIL. [Suspect]
     Active Substance: MINERAL OIL
     Indication: GASTROINTESTINAL DISORDER
     Route: 065
  4. SYNTHROID [Concomitant]
     Active Substance: LEVOTHYROXINE SODIUM
     Indication: HYPOTHYROIDISM
     Dosage: 75 MCG
     Route: 065
  5. DOMPERIDONE [Concomitant]
     Active Substance: DOMPERIDONE
     Indication: GASTRIC DISORDER
     Route: 065
  6. LACTULOSE SOLUTION USP, 10 G/15 ML [Suspect]
     Active Substance: LACTULOSE
     Indication: GASTROINTESTINAL DISORDER
     Route: 065
  7. CALTRATE WITH VITAMIN D [Suspect]
     Active Substance: CALCIUM CARBONATE\VITAMIN D
     Indication: SPINAL FRACTURE
     Route: 048
  8. OMEPRAZOLE. [Concomitant]
     Active Substance: OMEPRAZOLE
     Indication: GASTROOESOPHAGEAL REFLUX DISEASE
     Dosage: 40 MG
     Route: 065
  9. BABY ASPIRIN [Concomitant]
     Active Substance: ASPIRIN
     Indication: CORONARY ARTERY BYPASS
     Route: 065

REACTIONS (5)
  - Abdominal distension [Not Recovered/Not Resolved]
  - Constipation [Not Recovered/Not Resolved]
  - Intestinal obstruction [Not Recovered/Not Resolved]
  - Product quality issue [Unknown]
  - Drug ineffective [Not Recovered/Not Resolved]
